FAERS Safety Report 9438178 (Version 1)
Quarter: 2013Q3

REPORT INFORMATION
  Report Type: Spontaneous
  Country: US (occurrence: US)
  Receive Date: 20130802
  Receipt Date: 20130802
  Transmission Date: 20140515
  Serious: No
  Sender: FDA-Public Use
  Company Number: US-BRISTOL-MYERS SQUIBB COMPANY-17046723

PATIENT
  Age: 73 Year
  Sex: Female
  Weight: 48.98 kg

DRUGS (7)
  1. SPRYCEL [Suspect]
     Indication: CHRONIC MYELOID LEUKAEMIA
     Dosage: REDUCED TO 50 MG DAILY
     Route: 048
     Dates: start: 20120925
  2. WARFARIN SODIUM [Suspect]
     Indication: ATRIAL FIBRILLATION
  3. ASPIRIN [Suspect]
  4. AMIODARONE [Concomitant]
     Indication: ATRIAL FIBRILLATION
  5. DIGOXIN [Concomitant]
  6. SYNTHROID [Concomitant]
  7. SIMVASTATIN [Concomitant]

REACTIONS (2)
  - Thrombocytopenia [Not Recovered/Not Resolved]
  - Blood urine present [Not Recovered/Not Resolved]
